FAERS Safety Report 6230403-4 (Version None)
Quarter: 2009Q2

REPORT INFORMATION
  Report Type: 
  Country: None (occurrence: None)
  Receive Date: 20090615
  Receipt Date: 20090317
  Transmission Date: 20091009
  Serious: No
  Sender: FDA-Public Use
  Company Number: US-ABBOTT-09P-163-0563233-00

PATIENT
  Sex: Male
  Weight: 70.37 kg

DRUGS (3)
  1. TRILIPIX [Suspect]
     Indication: BLOOD CHOLESTEROL INCREASED
     Route: 048
     Dates: start: 20090201
  2. LIPITOR [Concomitant]
     Indication: BLOOD CHOLESTEROL INCREASED
     Route: 048
  3. MYCARDIA [Concomitant]
     Indication: HYPERTENSION
     Dosage: UNKNOWN STRENGTH
     Route: 048

REACTIONS (3)
  - JOINT CONTRACTURE [None]
  - OEDEMA PERIPHERAL [None]
  - PAIN IN EXTREMITY [None]
